FAERS Safety Report 5943417-6 (Version None)
Quarter: 2008Q4

REPORT INFORMATION
  Report Type: 
  Country: None (occurrence: None)
  Receive Date: 20081105
  Receipt Date: 20081105
  Transmission Date: 20090506
  Serious: Yes (Other)
  Sender: FDA-Public Use
  Company Number: None

PATIENT
  Age: 56 Year
  Sex: Male
  Weight: 89.8122 kg

DRUGS (1)
  1. METOPROLOL SUCCINATE EXTENDED RELEASE [Suspect]
     Indication: ARRHYTHMIA PROPHYLAXIS
     Dosage: 25 MG QD PO
     Route: 048
     Dates: start: 20080605, end: 20081103

REACTIONS (4)
  - BLOOD PRESSURE SYSTOLIC INCREASED [None]
  - DRUG EFFECT DECREASED [None]
  - HEART RATE DECREASED [None]
  - HEART RATE INCREASED [None]
